FAERS Safety Report 4911041-X (Version None)
Quarter: 2006Q1

REPORT INFORMATION
  Report Type: 
  Country: None (occurrence: None)
  Receive Date: 20060214
  Receipt Date: 20050927
  Transmission Date: 20060701
  Serious: Yes (Hospitalization, Disabling)
  Sender: FDA-Public Use
  Company Number: US-MERCK-0509USA04404

PATIENT
  Age: 54 Year
  Sex: Female
  Weight: 95 kg

DRUGS (10)
  1. VIOXX [Suspect]
     Indication: BACK PAIN
     Route: 048
     Dates: start: 20001115, end: 20030704
  2. VIOXX [Suspect]
     Indication: ARTHRITIS
     Route: 048
     Dates: start: 20001115, end: 20030704
  3. VALIUM [Concomitant]
     Indication: ANXIETY
     Route: 065
  4. DARVOCET-N 50 [Concomitant]
     Indication: BACK PAIN
     Route: 065
  5. LORTAB [Concomitant]
     Indication: BACK PAIN
     Route: 065
  6. LORCET-HD [Concomitant]
     Indication: BACK PAIN
     Route: 065
  7. FLEXERIL [Concomitant]
     Indication: BACK PAIN
     Route: 065
  8. THEON (THEOPHYLLINE) [Concomitant]
     Indication: EMPHYSEMA
     Route: 065
  9. VITA C [Concomitant]
     Route: 065
  10. CLONIDINE [Concomitant]
     Indication: HOT FLUSH
     Route: 065

REACTIONS (7)
  - CORONARY ARTERY DISEASE [None]
  - CORONARY ARTERY STENOSIS [None]
  - DERMATITIS CONTACT [None]
  - DYSLIPIDAEMIA [None]
  - HYPERTENSION [None]
  - MYOCARDIAL INFARCTION [None]
  - POSTMENOPAUSAL HAEMORRHAGE [None]
